FAERS Safety Report 15271432 (Version 1)
Quarter: 2018Q3

REPORT INFORMATION
  Report Type: Spontaneous
  Country: SE (occurrence: SE)
  Receive Date: 20180813
  Receipt Date: 20180813
  Transmission Date: 20181010
  Serious: Yes (Hospitalization)
  Sender: FDA-Public Use
  Company Number: SE-PFIZER INC-2018321943

PATIENT
  Age: 74 Year
  Sex: Female

DRUGS (2)
  1. FRAGMIN [Suspect]
     Active Substance: DALTEPARIN SODIUM
     Indication: ATRIAL FIBRILLATION
     Dosage: 10000 IU, DAILY
     Dates: end: 20180617
  2. FRAGMIN [Suspect]
     Active Substance: DALTEPARIN SODIUM
     Indication: HEART VALVE REPLACEMENT

REACTIONS (2)
  - Disease recurrence [Not Recovered/Not Resolved]
  - Cerebral haemorrhage [Not Recovered/Not Resolved]

NARRATIVE: CASE EVENT DATE: 20180617
